FAERS Safety Report 6264016-5 (Version None)
Quarter: 2009Q3

REPORT INFORMATION
  Report Type: 
  Country: None (occurrence: None)
  Receive Date: 20090710
  Receipt Date: 20090706
  Transmission Date: 20100115
  Serious: Yes (Life-Threatening)
  Sender: FDA-Public Use
  Company Number: AU-ASTRAZENECA-2009SE04008

PATIENT
  Age: 75 Year
  Sex: Male

DRUGS (4)
  1. PROPOFOL [Suspect]
     Indication: SENSORY DISTURBANCE
     Route: 042
     Dates: start: 20080520
  2. FENTANYL [Suspect]
     Indication: SENSORY DISTURBANCE
     Dosage: 250 MG 1 TIME
     Route: 042
     Dates: start: 20080520
  3. ATRACURIUM BESYLATE [Suspect]
     Indication: SENSORY DISTURBANCE
     Dosage: 1 UNSPECIFIED DOSE 1 TIME
     Route: 065
     Dates: start: 20080520
  4. METARAMINOL TARTRATE [Concomitant]
     Route: 042
     Dates: start: 20080520

REACTIONS (4)
  - BRONCHOSPASM [None]
  - CYANOSIS [None]
  - ERYTHEMA [None]
  - HYPOTENSION [None]
